FAERS Safety Report 8153610-2 (Version None)
Quarter: 2012Q1

REPORT INFORMATION
  Report Type: 
  Country: None (occurrence: None)
  Receive Date: 20120216
  Receipt Date: 20120216
  Transmission Date: 20120608
  Serious: Yes (Life-Threatening, Hospitalization, Disabling)
  Sender: FDA-Public Use
  Company Number: None

PATIENT
  Sex: Female
  Weight: 51.7101 kg

DRUGS (1)
  1. CLINDAMYCIN [Suspect]
     Indication: ENDODONTIC PROCEDURE
     Dosage: 150 MG 10 DAY SUPPLY ORAL
     Route: 048
     Dates: start: 20100629, end: 20100708

REACTIONS (4)
  - CLOSTRIDIAL INFECTION [None]
  - GASTROENTERITIS VIRAL [None]
  - GASTROINTESTINAL TOXICITY [None]
  - DIARRHOEA [None]
